FAERS Safety Report 8195904-0 (Version None)
Quarter: 2012Q1

REPORT INFORMATION
  Report Type: 
  Country: None (occurrence: None)
  Receive Date: 20120308
  Receipt Date: 20120228
  Transmission Date: 20120608
  Serious: Yes (Other)
  Sender: FDA-Public Use
  Company Number: US-ASTRAZENECA-2012SE13761

PATIENT
  Age: 44 Year
  Sex: Female
  Weight: 79.8 kg

DRUGS (4)
  1. LEVOTHYROXINE SODIUM [Concomitant]
  2. SEROQUEL [Suspect]
     Indication: INSOMNIA
     Route: 048
  3. SEROQUEL [Suspect]
     Indication: BIPOLAR DISORDER
     Route: 048
  4. CAN NOT RECALL MEDICATIONS [Concomitant]

REACTIONS (8)
  - LOSS OF CONSCIOUSNESS [None]
  - BIPOLAR DISORDER [None]
  - MIGRAINE [None]
  - DEPRESSION [None]
  - DRUG DOSE OMISSION [None]
  - OFF LABEL USE [None]
  - INSOMNIA [None]
  - MEMORY IMPAIRMENT [None]
